FAERS Safety Report 6544271-4 (Version None)
Quarter: 2010Q1

REPORT INFORMATION
  Report Type: 
  Country: None (occurrence: None)
  Receive Date: 20100115
  Receipt Date: 20100105
  Transmission Date: 20100710
  Serious: No
  Sender: FDA-Public Use
  Company Number: 008195

PATIENT
  Age: 7 Month
  Sex: 0

DRUGS (4)
  1. BUSULFEX [Suspect]
     Indication: STEM CELL TRANSPLANT
     Dates: start: 19990101
  2. ANTI-THYMOCYTE GLOBULIN NOS [Concomitant]
  3. CYTOXAN [Concomitant]
  4. CIDOFOVIR (CIDOFOVIR) [Concomitant]

REACTIONS (5)
  - CHRONIC GRAFT VERSUS HOST DISEASE [None]
  - DRUG TOXICITY [None]
  - OVERDOSE [None]
  - RENAL FAILURE [None]
  - SKIN DISORDER [None]
